FAERS Safety Report 4391525-6 (Version None)
Quarter: 2004Q3

REPORT INFORMATION
  Report Type: 
  Country: None (occurrence: None)
  Receive Date: 20040702
  Receipt Date: 20040525
  Transmission Date: 20050211
  Serious: No
  Sender: FDA-Public Use
  Company Number: 2004UW04989

PATIENT

DRUGS (1)
  1. CRESTOR [Suspect]

REACTIONS (2)
  - RENAL DISORDER [None]
  - RHABDOMYOLYSIS [None]
